FAERS Safety Report 19581608 (Version 2)
Quarter: 2021Q3

REPORT INFORMATION
  Report Type: Report from Study
  Country: GB (occurrence: GB)
  Receive Date: 20210720
  Receipt Date: 20210820
  Transmission Date: 20211014
  Serious: Yes (Death, Other)
  Sender: FDA-Public Use
  Company Number: GB-JNJFOC-20210730091

PATIENT
  Age: 66 Year
  Sex: Male
  Weight: 96 kg

DRUGS (12)
  1. NYSTATIN. [Concomitant]
     Active Substance: NYSTATIN
     Route: 065
     Dates: start: 20210619
  2. ADCAL [CALCIUM CARBONATE] [Concomitant]
     Route: 065
     Dates: start: 2015
  3. SANDO K [POTASSIUM CHLORIDE] [Concomitant]
     Active Substance: POTASSIUM
     Route: 065
     Dates: start: 20210620
  4. PREDNISOLONE. [Concomitant]
     Active Substance: PREDNISOLONE
     Indication: HORMONE-REFRACTORY PROSTATE CANCER
     Route: 065
     Dates: start: 20210602
  5. DECAPEPTYL [TRIPTORELIN] [Concomitant]
     Active Substance: TRIPTORELIN
     Route: 065
     Dates: start: 20151105
  6. OMEPRAZOLE. [Concomitant]
     Active Substance: OMEPRAZOLE
     Route: 065
     Dates: start: 2011
  7. ZYTIGA [Suspect]
     Active Substance: ABIRATERONE ACETATE
     Indication: HORMONE-REFRACTORY PROSTATE CANCER
     Route: 048
     Dates: start: 20210602
  8. CITALOPRAM [Concomitant]
     Active Substance: CITALOPRAM HYDROBROMIDE
     Route: 065
     Dates: start: 2014
  9. MAGNESIUM [Concomitant]
     Active Substance: MAGNESIUM
     Dates: start: 20210621
  10. VITAMIN D [ERGOCALCIFEROL] [Concomitant]
     Active Substance: ERGOCALCIFEROL
     Route: 065
     Dates: start: 2015
  11. CYCLIZINE [Concomitant]
     Active Substance: CYCLIZINE
     Route: 065
     Dates: start: 20210608
  12. ALENDRONIC ACID [Concomitant]
     Active Substance: ALENDRONIC ACID
     Route: 065
     Dates: start: 2015

REACTIONS (11)
  - Prostate cancer metastatic [Fatal]
  - Back pain [Unknown]
  - Hypokalaemia [Unknown]
  - Infection [Unknown]
  - Hypomagnesaemia [Unknown]
  - Constipation [Unknown]
  - Haemoglobin decreased [Recovered/Resolved]
  - Vomiting [Unknown]
  - Prostatic specific antigen increased [Unknown]
  - Oral candidiasis [Unknown]
  - Pyrexia [Unknown]

NARRATIVE: CASE EVENT DATE: 202106
